FAERS Safety Report 12591287 (Version 2)
Quarter: 2016Q3

REPORT INFORMATION
  Report Type: Spontaneous
  Country: US (occurrence: US)
  Receive Date: 20160726
  Receipt Date: 20160727
  Transmission Date: 20161109
  Serious: No
  Sender: FDA-Public Use
  Company Number: US-UNITED THERAPEUTICS-UNT-2016-005923

PATIENT
  Age: 74 Year
  Sex: Female
  Weight: 48.98 kg

DRUGS (1)
  1. REMODULIN [Suspect]
     Active Substance: TREPROSTINIL
     Indication: PULMONARY HYPERTENSION
     Dosage: 0.0135 ?G/KG, CONTINUING
     Route: 041
     Dates: start: 20160311

REACTIONS (4)
  - Cold sweat [Unknown]
  - Dizziness [Unknown]
  - Blood pressure fluctuation [Unknown]
  - Retching [Unknown]

NARRATIVE: CASE EVENT DATE: 20160409
